FAERS Safety Report 6991932-9 (Version None)
Quarter: 2010Q3

REPORT INFORMATION
  Report Type: 
  Country: None (occurrence: None)
  Receive Date: 20100917
  Receipt Date: 20100908
  Transmission Date: 20110219
  Serious: Yes (Other)
  Sender: FDA-Public Use
  Company Number: PHHY2010NZ59983

PATIENT
  Sex: Female

DRUGS (8)
  1. ESTRADERM [Suspect]
     Route: 062
  2. BETALOC [Concomitant]
  3. SIMVASTATIN [Concomitant]
  4. LEVOTHYROXINE SODIUM [Concomitant]
  5. ASPIRIN [Concomitant]
  6. CALCIUM [Concomitant]
  7. RANITIDINE [Concomitant]
  8. FRUSEMIDE [Concomitant]

REACTIONS (4)
  - CONFUSIONAL STATE [None]
  - DISORIENTATION [None]
  - DIZZINESS [None]
  - OEDEMA PERIPHERAL [None]
